FAERS Safety Report 21587107 (Version 1)
Quarter: 2022Q4

REPORT INFORMATION
  Report Type: Spontaneous
  Country: US (occurrence: US)
  Receive Date: 20221114
  Receipt Date: 20221114
  Transmission Date: 20230113
  Serious: No
  Sender: FDA-Public Use
  Company Number: US-BIOVITRUM-2022US13073

PATIENT
  Sex: Female
  Weight: 7 kg

DRUGS (5)
  1. SYNAGIS [Suspect]
     Active Substance: PALIVIZUMAB
     Indication: Premature baby
  2. TYLENOL 325 MG TABLET [Concomitant]
  3. D-VI-SOL 10(400) ML DROPS [Concomitant]
  4. ALLERGY 12.5MG/5ML LIQUID [Concomitant]
  5. SYNAGIS [Suspect]
     Active Substance: PALIVIZUMAB
     Indication: Bronchopulmonary dysplasia

REACTIONS (1)
  - Respiratory syncytial virus infection [Unknown]
